FAERS Safety Report 4601433-0 (Version None)
Quarter: 2005Q1

REPORT INFORMATION
  Report Type: 
  Country: None (occurrence: None)
  Receive Date: 20050308
  Receipt Date: 20050224
  Transmission Date: 20050727
  Serious: Yes (Other)
  Sender: FDA-Public Use
  Company Number: US-GLAXOSMITHKLINE-A0547061A

PATIENT
  Age: 81 Year
  Sex: Female
  Weight: 50.9 kg

DRUGS (8)
  1. ECOTRIN ADULT LOW STRENGTH TABLETS [Suspect]
     Indication: DRUG USE FOR UNKNOWN INDICATION
     Dates: start: 20000101
  2. VITAMIN B COMPLEX CAP [Concomitant]
  3. GLUCOSAMINE + CHONDROITIN [Concomitant]
  4. LOVASTATIN [Concomitant]
     Dosage: 50MG PER DAY
     Route: 048
  5. METOPROLOL [Concomitant]
     Dosage: 50MG PER DAY
     Route: 048
  6. TEMAZEPAM [Concomitant]
     Dosage: 1MG PER DAY
     Route: 048
  7. VITAMIN E [Concomitant]
  8. CALCIUM CITRATE [Concomitant]

REACTIONS (3)
  - DIABETES MELLITUS [None]
  - ERYTHEMA [None]
  - WEIGHT DECREASED [None]
